FAERS Safety Report 5237450-X (Version None)
Quarter: 2007Q1

REPORT INFORMATION
  Report Type: 
  Country: None (occurrence: None)
  Receive Date: 20070213
  Receipt Date: 20070206
  Transmission Date: 20070707
  Serious: Yes (Hospitalization)
  Sender: FDA-Public Use
  Company Number: NL-BOEHRINGER INGELHEIM PHARMACEUTICALS, INC.-2007-NL-00064NL

PATIENT
  Sex: Male
  Weight: 65 kg

DRUGS (4)
  1. MICARDIS [Suspect]
     Indication: HYPERTENSION
     Dates: start: 20060201
  2. CRESTOR [Concomitant]
     Indication: BLOOD CHOLESTEROL
  3. EYEDROPS [Concomitant]
  4. DIURETIC [Concomitant]

REACTIONS (1)
  - PULMONARY OEDEMA [None]
